FAERS Safety Report 12707875 (Version 1)
Quarter: 2016Q3

REPORT INFORMATION
  Report Type: Spontaneous
  Country: FR (occurrence: FR)
  Receive Date: 20160901
  Receipt Date: 20160901
  Transmission Date: 20161109
  Serious: Yes (Hospitalization)
  Sender: FDA-Public Use
  Company Number: FR-PFIZER INC-2016401311

PATIENT
  Age: 60 Year
  Sex: Female

DRUGS (5)
  1. SOLU-MEDROL [Suspect]
     Active Substance: METHYLPREDNISOLONE SODIUM SUCCINATE
     Indication: ANTIINFLAMMATORY THERAPY
     Dosage: 20 MG, 3X/DAY
     Route: 048
     Dates: start: 20160803, end: 20160805
  2. KLIPAL CODEINE [Suspect]
     Active Substance: ACETAMINOPHEN\CODEINE PHOSPHATE
     Indication: PAIN
     Dosage: 1 DF, 2X/DAY
     Route: 048
     Dates: start: 20160803, end: 20160806
  3. LEXOMIL [Concomitant]
     Active Substance: BROMAZEPAM
     Dosage: 0.75 DF, DAILY (0.25 DF IN THE MORNING AND 0.5 DF IN THE EVENING)
  4. TRIMEBUTINE [Concomitant]
     Active Substance: TRIMEBUTINE
     Dosage: 1 TABLET, 3X/DAY
  5. AVLOCARDYL /00030002/ [Concomitant]
     Dosage: 60 MG, DAILY (0.5 DF IN THE MORNING AND 1 DF IN THE EVENING)

REACTIONS (1)
  - Hypoglycaemia [Recovered/Resolved]

NARRATIVE: CASE EVENT DATE: 20160807
